FAERS Safety Report 20059762 (Version 1)
Quarter: 2021Q4

REPORT INFORMATION
  Report Type: Report from Study
  Country: IT (occurrence: IT)
  Receive Date: 20211111
  Receipt Date: 20211111
  Transmission Date: 20220303
  Serious: Yes (Hospitalization)
  Sender: FDA-Public Use
  Company Number: None

PATIENT
  Age: 25 Year
  Sex: Female
  Weight: 57 kg

DRUGS (3)
  1. FLUOXETINE [Suspect]
     Active Substance: FLUOXETINE HYDROCHLORIDE
     Indication: Product used for unknown indication
     Dosage: 280 MILLIGRAM, TOTAL
     Route: 048
     Dates: start: 20210726, end: 20210726
  2. MIRTAZAPINE [Suspect]
     Active Substance: MIRTAZAPINE
     Indication: Product used for unknown indication
     Dosage: 900 MILLIGRAM, TOTAL
     Route: 048
     Dates: start: 20210726, end: 20210726
  3. VALPROIC ACID [Suspect]
     Active Substance: VALPROIC ACID
     Indication: Product used for unknown indication
     Dosage: 20 DOSAGE FORM, TOTAL
     Route: 048
     Dates: start: 20210726, end: 20210726

REACTIONS (4)
  - Drug abuse [Recovering/Resolving]
  - Presyncope [Recovering/Resolving]
  - Tremor [Recovering/Resolving]
  - Malaise [Recovering/Resolving]

NARRATIVE: CASE EVENT DATE: 20210726
